FAERS Safety Report 11910402 (Version 1)
Quarter: 2016Q1

REPORT INFORMATION
  Report Type: Spontaneous
  Country: US (occurrence: US)
  Receive Date: 20160112
  Receipt Date: 20160112
  Transmission Date: 20160526
  Serious: Yes (Congenital Anomaly, Other)
  Sender: FDA-Public Use
  Company Number: US-BAYER-2016-005592

PATIENT
  Sex: Female

DRUGS (2)
  1. NIFEDIPINE. [Suspect]
     Active Substance: NIFEDIPINE
  2. NIFEDIPINE. [Suspect]
     Active Substance: NIFEDIPINE

REACTIONS (7)
  - Congenital pyelocaliectasis [None]
  - Duodenal atresia [None]
  - Premature baby [None]
  - Atrial septal defect [None]
  - Patent ductus arteriosus [None]
  - Low birth weight baby [None]
  - Foetal exposure during pregnancy [None]
